FAERS Safety Report 16046004 (Version 1)
Quarter: 2019Q1

REPORT INFORMATION
  Report Type: Other
  Country: DE (occurrence: DE)
  Receive Date: 20190307
  Receipt Date: 20190307
  Transmission Date: 20190418
  Serious: Yes (Death, Other)
  Sender: FDA-Public Use
  Company Number: DE-LUPIN PHARMACEUTICALS INC.-2019-01217

PATIENT
  Age: 86 Year
  Sex: Female
  Weight: 80 kg

DRUGS (5)
  1. BISOPROLOL [Concomitant]
     Active Substance: BISOPROLOL
     Indication: PRODUCT USED FOR UNKNOWN INDICATION
     Dosage: 5 MILLIGRAM, QD
     Route: 048
  2. SERTRALINE [Suspect]
     Active Substance: SERTRALINE HYDROCHLORIDE
     Indication: DEPRESSION
     Dosage: 50 MILLIGRAM, QD
     Route: 048
     Dates: end: 20190201
  3. OLICLINOMEL                        /07408801/ [Concomitant]
     Indication: DIET REFUSAL
     Dosage: 2000 MILLILITER, QD
     Route: 042
  4. VANCOMYCIN [Concomitant]
     Active Substance: VANCOMYCIN
     Indication: GASTROENTERITIS CLOSTRIDIAL
     Dosage: 1000 MILLIGRAM, QD
     Route: 048
     Dates: start: 20190205, end: 20190208
  5. PANTOPRAZOL                        /01263201/ [Concomitant]
     Active Substance: PANTOPRAZOLE
     Indication: DECREASED APPETITE
     Dosage: 80 MILLIGRAM (EVERY HOUR)
     Route: 048
     Dates: start: 20190125

REACTIONS (3)
  - Leukopenia [Fatal]
  - Thrombocytopenia [Fatal]
  - Immune thrombocytopenic purpura [Fatal]

NARRATIVE: CASE EVENT DATE: 20190201
